FAERS Safety Report 17355043 (Version 4)
Quarter: 2020Q2

REPORT INFORMATION
  Report Type: Spontaneous
  Country: US (occurrence: US)
  Receive Date: 20200131
  Receipt Date: 20200609
  Transmission Date: 20200713
  Serious: Yes (Other)
  Sender: FDA-Public Use
  Company Number: US-PFIZER INC-2020043120

PATIENT
  Age: 45 Year
  Sex: Female

DRUGS (1)
  1. XELJANZ XR [Suspect]
     Active Substance: TOFACITINIB CITRATE
     Indication: RHEUMATOID ARTHRITIS
     Dosage: 11 MG, DAILY
     Route: 048
     Dates: start: 201912

REACTIONS (6)
  - Cough [Not Recovered/Not Resolved]
  - Eye infection [Unknown]
  - Memory impairment [Unknown]
  - Hypersensitivity [Unknown]
  - Product dose omission [Unknown]
  - Rhinorrhoea [Recovered/Resolved]
